FAERS Safety Report 4709306-X (Version None)
Quarter: 2005Q3

REPORT INFORMATION
  Report Type: 
  Country: None (occurrence: None)
  Receive Date: 20050708
  Receipt Date: 20050623
  Transmission Date: 20060218
  Serious: Yes (Other)
  Sender: FDA-Public Use
  Company Number: BE-JNJFOC-20050606324

PATIENT
  Sex: Female
  Weight: 78.8 kg

DRUGS (11)
  1. GALANTAMINE HYDROBROMIDE [Suspect]
     Indication: VASCULAR DEMENTIA
     Route: 065
     Dates: start: 20040105, end: 20050704
  2. ASAFLOW [Concomitant]
     Indication: CEREBROVASCULAR ACCIDENT PROPHYLAXIS
     Route: 049
  3. ZESTORETIC [Concomitant]
     Route: 049
  4. ZESTORETIC [Concomitant]
     Indication: HYPERTENSION
     Route: 049
  5. COSOPT [Concomitant]
     Route: 065
  6. COSOPT [Concomitant]
     Indication: CATARACT OPERATION
     Route: 065
  7. ALPHAGAN [Concomitant]
     Route: 065
  8. DE ICOL [Concomitant]
     Route: 065
  9. DE ICOL [Concomitant]
     Route: 065
  10. DE ICOL [Concomitant]
     Route: 065
  11. DE ICOL [Concomitant]
     Indication: CATARACT OPERATION
     Route: 065

REACTIONS (1)
  - DIABETES MELLITUS [None]
